FAERS Safety Report 18802184 (Version 3)
Quarter: 2021Q1

REPORT INFORMATION
  Report Type: Spontaneous
  Country: US (occurrence: US)
  Receive Date: 20210128
  Receipt Date: 20210302
  Transmission Date: 20210419
  Serious: No
  Sender: FDA-Public Use
  Company Number: US-PFIZER INC-2021061142

PATIENT
  Age: 17 Year
  Sex: Female

DRUGS (1)
  1. XALKORI [Suspect]
     Active Substance: CRIZOTINIB
     Indication: ANAPLASTIC LARGE CELL LYMPHOMA T- AND NULL-CELL TYPES
     Dosage: 500 MG, 2X/DAY (TAKE 2 CAPSULES)
     Route: 048
     Dates: start: 202012

REACTIONS (6)
  - Dizziness [Unknown]
  - Decreased appetite [Unknown]
  - Visual impairment [Unknown]
  - Tongue disorder [Unknown]
  - Off label use [Unknown]
  - Nausea [Unknown]

NARRATIVE: CASE EVENT DATE: 202012
